FAERS Safety Report 8195750-8 (Version None)
Quarter: 2012Q1

REPORT INFORMATION
  Report Type: 
  Country: None (occurrence: None)
  Receive Date: 20120308
  Receipt Date: 20120305
  Transmission Date: 20120608
  Serious: Yes (Hospitalization, Other)
  Sender: FDA-Public Use
  Company Number: GB-PFIZER INC-2012031490

PATIENT
  Age: 66 Year
  Sex: Male

DRUGS (10)
  1. PARACETAMOL [Concomitant]
     Dosage: 1 G, 4X/DAY
     Route: 048
  2. MORPHINE [Concomitant]
     Dosage: 5 MG, UNK
     Route: 048
  3. VARENICLINE TARTRATE [Suspect]
     Dosage: 1 MG, 1X/DAY
     Route: 048
     Dates: start: 20111201
  4. ROSUVASTATIN [Concomitant]
     Dosage: 20 MG, 1X/DAY
     Route: 048
  5. NICORANDIL [Concomitant]
     Dosage: 20 MG, UNK
     Route: 048
  6. WARFARIN [Concomitant]
     Dosage: UNK, ONCE DAILY
     Route: 048
  7. ACETYLSALICYLIC ACID [Concomitant]
     Dosage: 75 MG, 1X/DAY
     Route: 048
  8. CODEINE [Concomitant]
     Dosage: UNK
  9. GABAPENTIN [Concomitant]
     Dosage: 300 MG, 3X/DAY
     Route: 048
  10. ISOSORBIDE MONONITRATE [Concomitant]
     Dosage: 30 MG, 1X/DAY
     Route: 048

REACTIONS (6)
  - ANGINA PECTORIS [None]
  - HYPOAESTHESIA [None]
  - ABDOMINAL PAIN [None]
  - HEMIPARESIS [None]
  - VISUAL IMPAIRMENT [None]
  - CONSTIPATION [None]
